FAERS Safety Report 24580770 (Version 1)
Quarter: 2024Q4

REPORT INFORMATION
  Report Type: Spontaneous
  Country: AR (occurrence: AR)
  Receive Date: 20241105
  Receipt Date: 20241105
  Transmission Date: 20250114
  Serious: Yes (Life-Threatening, Hospitalization)
  Sender: PFIZER
  Company Number: AR-PFIZER INC-PV202400141600

PATIENT
  Age: 64 Year
  Sex: Female

DRUGS (2)
  1. BEVACIZUMAB [Suspect]
     Active Substance: BEVACIZUMAB
     Indication: Hereditary haemorrhagic telangiectasia
     Dosage: UNK
     Dates: start: 202210
  2. BEVACIZUMAB [Suspect]
     Active Substance: BEVACIZUMAB
     Dosage: INFUSION
     Dates: start: 202305, end: 2023

REACTIONS (9)
  - Posterior reversible encephalopathy syndrome [Unknown]
  - Hemiplegia [Unknown]
  - Headache [Unknown]
  - Hypertension [Unknown]
  - Sensory disturbance [Unknown]
  - Hypotension [Unknown]
  - Motor dysfunction [Unknown]
  - Stress cardiomyopathy [Unknown]
  - Off label use [Unknown]

NARRATIVE: CASE EVENT DATE: 20221001
